FAERS Safety Report 5929114-1 (Version None)
Quarter: 2008Q4

REPORT INFORMATION
  Report Type: 
  Country: None (occurrence: None)
  Receive Date: 20081024
  Receipt Date: 20081017
  Transmission Date: 20090506
  Serious: Yes (Other)
  Sender: FDA-Public Use
  Company Number: GB-TEVA-179121ISR

PATIENT
  Age: 20 Year
  Sex: Female
  Weight: 55.8 kg

DRUGS (1)
  1. METHOTREXATE [Suspect]
     Indication: ECTOPIC PREGNANCY
     Route: 030
     Dates: start: 20080915, end: 20080915

REACTIONS (2)
  - EYE PAIN [None]
  - SCLERAL DISCOLOURATION [None]
